FAERS Safety Report 14129428 (Version 4)
Quarter: 2018Q1

REPORT INFORMATION
  Report Type: Report from Study
  Country: DE (occurrence: DE)
  Receive Date: 20171026
  Receipt Date: 20180219
  Transmission Date: 20180508
  Serious: Yes (Hospitalization)
  Sender: FDA-Public Use
  Company Number: DE-JNJFOC-20150919151

PATIENT
  Age: 32 Year
  Sex: Male

DRUGS (4)
  1. SIMPONI [Suspect]
     Active Substance: GOLIMUMAB
     Indication: COLITIS ULCERATIVE
     Route: 058
     Dates: start: 20140623, end: 20150219
  2. AZITHROMYCIN ANHYDROUS. [Concomitant]
     Active Substance: AZITHROMYCIN ANHYDROUS
     Route: 065
     Dates: start: 20151222, end: 20151225
  3. SIMPONI [Suspect]
     Active Substance: GOLIMUMAB
     Indication: COLITIS ULCERATIVE
     Route: 058
     Dates: start: 20151222, end: 20151222
  4. SIMPONI [Suspect]
     Active Substance: GOLIMUMAB
     Indication: COLITIS ULCERATIVE
     Route: 058
     Dates: start: 20160602, end: 20160702

REACTIONS (13)
  - Nephrolithiasis [Recovered/Resolved]
  - Nasopharyngitis [Recovering/Resolving]
  - Ureterolithiasis [Recovered/Resolved]
  - Vitamin D deficiency [Recovering/Resolving]
  - Stent placement [Recovered/Resolved]
  - Anal haemorrhage [Recovering/Resolving]
  - Night sweats [Recovered/Resolved]
  - Thyroid disorder [Unknown]
  - Sickle cell disease [Not Recovered/Not Resolved]
  - Alanine aminotransferase increased [Recovering/Resolving]
  - Pelvi-ureteric obstruction [Recovering/Resolving]
  - Pyrexia [Recovering/Resolving]
  - Bronchial disorder [Recovering/Resolving]

NARRATIVE: CASE EVENT DATE: 20140623
